FAERS Safety Report 9088197 (Version 3)
Quarter: 2013Q1

REPORT INFORMATION
  Report Type: Spontaneous
  Country: JP (occurrence: JP)
  Receive Date: 20130201
  Receipt Date: 20130227
  Transmission Date: 20140127
  Serious: Yes (Other)
  Sender: FDA-Public Use
  Company Number: JP-PFIZER INC-2013037135

PATIENT
  Age: 78 Year
  Sex: Female

DRUGS (5)
  1. DETRUSITOL [Suspect]
     Indication: HYPERTONIC BLADDER
     Dosage: 4 MG, 1X/DAY
     Route: 048
     Dates: start: 20130123, end: 20130123
  2. CADUET [Concomitant]
     Indication: HYPERTENSION
     Dosage: AMLODIPINE 2.5 MG/ATORVASTATIN 5 MG, 1XDAY
     Route: 048
     Dates: start: 20101122
  3. CADUET [Concomitant]
     Indication: HYPERLIPIDAEMIA
  4. SINGULAIR [Concomitant]
     Indication: ASTHMA
     Dosage: 10 MG, 1X/DAY
     Route: 048
     Dates: start: 20070728
  5. SOLANAX [Concomitant]
     Indication: ANXIETY DISORDER
     Dosage: 0.4 MG, 1X/DAY
     Route: 048
     Dates: start: 20070725

REACTIONS (2)
  - Atrial fibrillation [Recovered/Resolved]
  - Urinary retention [Recovered/Resolved]
